FAERS Safety Report 7565895-1 (Version None)
Quarter: 2011Q2

REPORT INFORMATION
  Report Type: 
  Country: None (occurrence: None)
  Receive Date: 20110623
  Receipt Date: 20110616
  Transmission Date: 20111010
  Serious: Yes (Other)
  Sender: FDA-Public Use
  Company Number: US-PFIZER INC-2011084866

PATIENT
  Sex: Female

DRUGS (5)
  1. NEURONTIN [Suspect]
     Indication: NEUROPATHY PERIPHERAL
     Dosage: SIX 300 MG CAPSULES DAILY
     Route: 048
  2. CYMBALTA [Suspect]
     Dosage: UNK
  3. NEURONTIN [Suspect]
     Indication: NEURALGIA
     Dosage: 300 MG, UNK
     Route: 048
     Dates: start: 20090101
  4. NORTRIPTYLINE HYDROCHLORIDE [Suspect]
     Dosage: UNK
  5. LYRICA [Suspect]
     Dosage: UNK

REACTIONS (2)
  - BLOOD PRESSURE INCREASED [None]
  - SWELLING [None]
